FAERS Safety Report 6641359-4 (Version None)
Quarter: 2010Q1

REPORT INFORMATION
  Report Type: 
  Country: None (occurrence: None)
  Receive Date: 20100318
  Receipt Date: 20090603
  Transmission Date: 20100710
  Serious: Yes (Death)
  Sender: FDA-Public Use
  Company Number: PHEH2009US18960

PATIENT
  Sex: Female

DRUGS (23)
  1. GLEEVEC [Suspect]
     Indication: CHRONIC MYELOID LEUKAEMIA
     Dosage: 400 MG, DAILY
     Route: 048
     Dates: start: 20090208
  2. ALAVERT [Concomitant]
  3. LANTUS [Concomitant]
  4. NOVOLOG [Concomitant]
  5. FISH OIL [Concomitant]
  6. NITROGLYCERIN [Concomitant]
  7. MYLANTA GAS [Concomitant]
  8. PROPOXYPHENE NAPSYLATE W/ ACETAMINOPHEN [Concomitant]
  9. ACETAMINOPHEN AND HYDROCODONE BITARTRATE [Concomitant]
  10. SENNA [Concomitant]
  11. CENTRUM [Concomitant]
  12. MAGNESIUM OXIDE [Concomitant]
  13. AMLODIPINE [Concomitant]
  14. TEMAZEPAM [Concomitant]
  15. ISOSORBIDE MONONITRATE [Concomitant]
  16. GABAPENTIN [Concomitant]
  17. PENTOXIFYLLINE [Concomitant]
  18. K-TAB [Concomitant]
  19. FUROSEMIDE [Concomitant]
  20. PROTONIX [Concomitant]
  21. SIMVASTATIN [Concomitant]
  22. PLAVIX [Concomitant]
  23. METOPROLOL TARTRATE [Concomitant]

REACTIONS (1)
  - DEATH [None]
